FAERS Safety Report 19816144 (Version 2)
Quarter: 2021Q3

REPORT INFORMATION
  Report Type: Spontaneous
  Country: JP (occurrence: JP)
  Receive Date: 20210910
  Receipt Date: 20210922
  Transmission Date: 20211014
  Serious: Yes (Hospitalization)
  Sender: FDA-Public Use
  Company Number: JP-WOODWARD-2021-JP-000444

PATIENT
  Age: 77 Year
  Sex: Male

DRUGS (2)
  1. DUTASTERIDE (UNSPECIFIED) [Suspect]
     Active Substance: DUTASTERIDE
     Indication: BENIGN PROSTATIC HYPERPLASIA
     Dosage: 1 MG DAILY
     Route: 048
  2. TAMSULOSIN HYDROCHLORIDE. [Concomitant]
     Active Substance: TAMSULOSIN HYDROCHLORIDE
     Route: 065

REACTIONS (2)
  - Overdose [Unknown]
  - Stent placement [Recovered/Resolved]
